FAERS Safety Report 25337765 (Version 1)
Quarter: 2025Q2

REPORT INFORMATION
  Report Type: Spontaneous
  Country: US (occurrence: US)
  Receive Date: 20250520
  Receipt Date: 20250520
  Transmission Date: 20250716
  Serious: Yes (Hospitalization, Other)
  Sender: AMGEN
  Company Number: US-AMGEN-USASP2025093906

PATIENT
  Age: 26 Year
  Sex: Male

DRUGS (12)
  1. INFLIXIMAB [Suspect]
     Active Substance: INFLIXIMAB
     Indication: Crohn^s disease
     Dosage: UNK, Q4WK
     Route: 065
  2. USTEKINUMAB [Suspect]
     Active Substance: USTEKINUMAB
     Indication: Crohn^s disease
     Route: 065
  3. CYCLOPHOSPHAMIDE [Concomitant]
     Active Substance: CYCLOPHOSPHAMIDE
  4. VINCRISTINE [Concomitant]
     Active Substance: VINCRISTINE
  5. DOXORUBICIN [Concomitant]
     Active Substance: DOXORUBICIN
  6. DEXAMETHASONE [Concomitant]
     Active Substance: DEXAMETHASONE
  7. PENTOSTATIN [Concomitant]
     Active Substance: PENTOSTATIN
  8. ALEMTUZUMAB [Concomitant]
     Active Substance: ALEMTUZUMAB
  9. METHOTREXATE [Concomitant]
     Active Substance: METHOTREXATE
  10. IFOSFAMIDE [Concomitant]
     Active Substance: IFOSFAMIDE
  11. CARBOPLATIN [Concomitant]
     Active Substance: CARBOPLATIN
  12. ETOPOSIDE [Concomitant]
     Active Substance: ETOPOSIDE

REACTIONS (7)
  - Anal abscess [Unknown]
  - Hepatosplenic T-cell lymphoma [Unknown]
  - Pneumonia [Unknown]
  - Liver function test abnormal [Unknown]
  - Fistula [Unknown]
  - Abdominal pain [Unknown]
  - Inflammatory marker increased [Unknown]
